FAERS Safety Report 9492117 (Version 2)
Quarter: 2013Q3

REPORT INFORMATION
  Report Type: Report from Study
  Country: TW (occurrence: TW)
  Receive Date: 20130830
  Receipt Date: 20130830
  Transmission Date: 20140515
  Serious: Yes (Other)
  Sender: FDA-Public Use
  Company Number: PHHO2010TW16479

PATIENT
  Age: 77 Year
  Sex: Male
  Weight: 71.5 kg

DRUGS (6)
  1. ALISKIREN [Suspect]
     Indication: CARDIOVASCULAR DISORDER
     Route: 048
     Dates: start: 20080401, end: 20101005
  2. ETOFENAMATE [Concomitant]
  3. GLYCOMET [Concomitant]
  4. VALSARTAN [Concomitant]
  5. DIPYRIDAMOLE [Concomitant]
  6. AMARYL [Concomitant]

REACTIONS (3)
  - Diabetic nephropathy [Recovering/Resolving]
  - Renal failure chronic [Recovering/Resolving]
  - Blood creatinine increased [Recovering/Resolving]
